FAERS Safety Report 14144303 (Version 1)
Quarter: 2017Q4

REPORT INFORMATION
  Report Type: Spontaneous
  Country: US (occurrence: US)
  Receive Date: 20171031
  Receipt Date: 20171031
  Transmission Date: 20180321
  Serious: No
  Sender: FDA-Public Use
  Company Number: US-PFIZER INC-2017463370

PATIENT
  Age: 23 Year
  Sex: Male

DRUGS (3)
  1. EUCRISA [Suspect]
     Active Substance: CRISABOROLE
     Indication: ECZEMA
     Dosage: UNK, 1X/DAY
     Route: 061
  2. ELOCON [Concomitant]
     Active Substance: MOMETASONE FUROATE
     Indication: ECZEMA
     Dosage: UNK, AS NEEDED, (MORNING AND ONCE AT NIGHT)
     Route: 061
  3. ELOCON [Concomitant]
     Active Substance: MOMETASONE FUROATE
     Dosage: UNK, MONTHLY, (ONCE A MONTH)
     Route: 061

REACTIONS (1)
  - Drug ineffective [Unknown]
